FAERS Safety Report 5198710-4 (Version None)
Quarter: 2007Q1

REPORT INFORMATION
  Report Type: 
  Country: None (occurrence: None)
  Receive Date: 20070104
  Receipt Date: 20061222
  Transmission Date: 20070707
  Serious: Yes (Other)
  Sender: FDA-Public Use
  Company Number: DE-ELI_LILLY_AND_COMPANY-DE200612004021

PATIENT
  Age: 14 Year
  Sex: Male
  Weight: 40 kg

DRUGS (4)
  1. STRATTERA [Suspect]
     Indication: MENTAL DISABILITY
     Dosage: 25 MG, DAILY (1/D)
     Route: 048
     Dates: start: 20061221, end: 20061221
  2. RISPERDAL /SWE/ [Concomitant]
     Indication: MENTAL DISABILITY
     Dosage: 1.5 MG, 2/D
     Route: 048
  3. TRILEPTAL [Concomitant]
     Indication: MENTAL DISABILITY
     Dosage: 84 MG, 2/D
     Route: 048
  4. AKINETON [Concomitant]
     Dosage: 2 MG, 2/D
     Route: 048

REACTIONS (3)
  - AGGRESSION [None]
  - COORDINATION ABNORMAL [None]
  - OFF LABEL USE [None]
